FAERS Safety Report 10239715 (Version 1)
Quarter: 2014Q2

REPORT INFORMATION
  Report Type: Spontaneous
  Country: BE (occurrence: BE)
  Receive Date: 20140616
  Receipt Date: 20140616
  Transmission Date: 20141212
  Serious: Yes (Other)
  Sender: FDA-Public Use
  Company Number: BE-PFIZER INC-2014160615

PATIENT
  Age: 65 Year
  Sex: Female
  Weight: 49 kg

DRUGS (4)
  1. TOTALIP [Suspect]
     Indication: HYPERCHOLESTEROLAEMIA
     Dosage: 10 MG, 1X/DAY
     Route: 048
     Dates: start: 20140505, end: 20140507
  2. SINTROM [Concomitant]
     Indication: PROPHYLAXIS
     Dosage: 2 DF, 1X/DAY
     Route: 048
     Dates: start: 20140424
  3. BISOPROLOL [Concomitant]
     Indication: ARRHYTHMIA
     Dosage: 5 MG, 1X/DAY
     Route: 048
     Dates: start: 20140415
  4. STAURODORM [Concomitant]
     Indication: INSOMNIA
     Dosage: UNK
     Dates: start: 2009

REACTIONS (1)
  - Ventricular arrhythmia [Not Recovered/Not Resolved]
